FAERS Safety Report 11493786 (Version 1)
Quarter: 2015Q3

REPORT INFORMATION
  Report Type: Spontaneous
  Country: US (occurrence: None)
  Receive Date: 20150910
  Receipt Date: 20150910
  Transmission Date: 20151125
  Serious: No
  Sender: FDA-Public Use
  Company Number: None

PATIENT
  Age: 72 Year
  Sex: Female
  Weight: 86.64 kg

DRUGS (10)
  1. METFORMIN [Suspect]
     Active Substance: METFORMIN HYDROCHLORIDE
     Indication: TYPE 2 DIABETES MELLITUS
     Dosage: 500 MG, AT BEDTIME
     Route: 048
     Dates: start: 20150608, end: 20150615
  2. CENTRUM SILVER [Concomitant]
     Active Substance: VITAMINS
  3. ASPIRIN. [Concomitant]
     Active Substance: ASPIRIN
  4. LISINOPRIL. [Concomitant]
     Active Substance: LISINOPRIL
  5. FUROSEMIDE. [Concomitant]
     Active Substance: FUROSEMIDE
  6. FISH OIL [Concomitant]
     Active Substance: FISH OIL
  7. PLAVIX [Concomitant]
     Active Substance: CLOPIDOGREL BISULFATE
  8. JANUVEA [Concomitant]
  9. FAMOTIDINE. [Concomitant]
     Active Substance: FAMOTIDINE
  10. BIOTIN [Concomitant]
     Active Substance: BIOTIN

REACTIONS (7)
  - Cerebrovascular accident [None]
  - Gait disturbance [None]
  - Pain in jaw [None]
  - Micturition urgency [None]
  - Urinary incontinence [None]
  - Fatigue [None]
  - Muscular weakness [None]

NARRATIVE: CASE EVENT DATE: 20150609
